FAERS Safety Report 10065283 (Version 2)
Quarter: 2014Q2

REPORT INFORMATION
  Report Type: Spontaneous
  Country: DE (occurrence: DE)
  Receive Date: 20140408
  Receipt Date: 20140422
  Transmission Date: 20141212
  Serious: Yes (Other)
  Sender: FDA-Public Use
  Company Number: DE-PFIZER INC-2014095351

PATIENT
  Age: 34 Year
  Sex: Female

DRUGS (3)
  1. LYRICA [Suspect]
     Indication: POST-TRAUMATIC STRESS DISORDER
     Dosage: 300 MG, DAILY
  2. LYRICA [Suspect]
     Indication: POLYSUBSTANCE DEPENDENCE
     Dosage: 600 MG, UNK
  3. LYRICA [Suspect]
     Indication: BORDERLINE PERSONALITY DISORDER

REACTIONS (3)
  - Off label use [Unknown]
  - Suicide attempt [Unknown]
  - Drug dependence [Unknown]
